FAERS Safety Report 10977739 (Version 2)
Quarter: 2015Q4

REPORT INFORMATION
  Report Type: Spontaneous
  Country: US (occurrence: None)
  Receive Date: 20150331
  Receipt Date: 20151022
  Transmission Date: 20160304
  Serious: Yes (Life-Threatening, Hospitalization, Other)
  Sender: FDA-Public Use
  Company Number: ADR-2015-00608

PATIENT
  Age: 55 Year
  Sex: Female

DRUGS (2)
  1. BACLOFEN INTRATHECAL [Suspect]
     Active Substance: BACLOFEN
  2. DILAUDID [Suspect]
     Active Substance: HYDROMORPHONE HYDROCHLORIDE

REACTIONS (8)
  - Urinary tract infection [None]
  - Seizure [None]
  - Mental status changes [None]
  - Liver disorder [None]
  - Pain [None]
  - Encephalopathy [None]
  - Depressed level of consciousness [None]
  - Coma [None]
